FAERS Safety Report 15318417 (Version 1)
Quarter: 2018Q3

REPORT INFORMATION
  Report Type: Spontaneous
  Country: US (occurrence: US)
  Receive Date: 20180825
  Receipt Date: 20180825
  Transmission Date: 20181010
  Serious: No
  Sender: FDA-Public Use
  Company Number: US-TEVA-2018-US-947637

PATIENT
  Sex: Male

DRUGS (2)
  1. VALSARTAN W/HYDROCHLOROTHIAZIDE [Suspect]
     Active Substance: HYDROCHLOROTHIAZIDE\VALSARTAN
     Dosage: 1 DOSAGE FORM: VALSARTAN 160 MG + HYDROCHLOROTHIAZIDE 12.5MG
     Route: 065
     Dates: start: 201712
  2. VALSARTAN. [Concomitant]
     Active Substance: VALSARTAN
     Route: 065

REACTIONS (1)
  - Hypoaesthesia [Unknown]

NARRATIVE: CASE EVENT DATE: 20180814
